FAERS Safety Report 8523602 (Version 5)
Quarter: 2014Q2

REPORT INFORMATION
  Report Type: Report from Study
  Country: JP (occurrence: JP)
  Receive Date: 20120420
  Receipt Date: 20140520
  Transmission Date: 20141212
  Serious: Yes (Life-Threatening, Hospitalization, Other)
  Sender: FDA-Public Use
  Company Number: JP-CELGENEUS-087-50794-12041966

PATIENT
  Age: 79 Year
  Sex: Male
  Weight: 63 kg

DRUGS (99)
  1. VIDAZA [Suspect]
     Indication: MYELODYSPLASTIC SYNDROME
     Dosage: 56.25 MILLIGRAM/SQ. METER
     Route: 058
     Dates: start: 20110513, end: 20110519
  2. VIDAZA [Suspect]
     Dosage: 56.25 MILLIGRAM/SQ. METER
     Route: 058
     Dates: start: 20110621, end: 20110627
  3. VIDAZA [Suspect]
     Dosage: 75 MILLIGRAM/SQ. METER
     Route: 041
     Dates: start: 20111022, end: 20111028
  4. VIDAZA [Suspect]
     Dosage: 75 MILLIGRAM/SQ. METER
     Route: 041
     Dates: start: 20120119, end: 20120125
  5. VIDAZA [Suspect]
     Dosage: 75 MILLIGRAM/SQ. METER
     Route: 041
     Dates: start: 20120308, end: 20120314
  6. VIDAZA [Suspect]
     Dosage: 75 MILLIGRAM/SQ. METER
     Route: 041
     Dates: start: 20120510, end: 20120516
  7. VIDAZA [Suspect]
     Dosage: 75 MILLIGRAM/SQ. METER
     Route: 041
     Dates: start: 20120706, end: 20120712
  8. ALOXI [Concomitant]
     Indication: PRODUCT USED FOR UNKNOWN INDICATION
     Route: 065
     Dates: start: 20110514, end: 20110514
  9. ALOXI [Concomitant]
     Route: 065
     Dates: start: 20110621, end: 20110621
  10. ALOXI [Concomitant]
     Route: 065
     Dates: start: 20111022, end: 20111022
  11. ALOXI [Concomitant]
     Route: 065
     Dates: start: 20120119, end: 20120119
  12. ALOXI [Concomitant]
     Route: 065
     Dates: start: 20120308, end: 20120308
  13. ALOXI [Concomitant]
     Route: 065
     Dates: start: 20120510, end: 20120510
  14. ALOXI [Concomitant]
     Route: 065
     Dates: start: 20120706, end: 20120706
  15. ALOXI [Concomitant]
     Route: 065
     Dates: start: 20120120
  16. RED BLOOD CELLS [Concomitant]
     Indication: PRODUCT USED FOR UNKNOWN INDICATION
     Route: 041
  17. ANABOLIC STERIOD HORMONE [Concomitant]
     Indication: PRODUCT USED FOR UNKNOWN INDICATION
     Route: 065
  18. LASIX [Concomitant]
     Indication: PRODUCT USED FOR UNKNOWN INDICATION
     Route: 065
     Dates: start: 20110515, end: 20110515
  19. GLAKAY [Concomitant]
     Indication: PRODUCT USED FOR UNKNOWN INDICATION
     Route: 065
     Dates: start: 201105
  20. URSO [Concomitant]
     Indication: PRODUCT USED FOR UNKNOWN INDICATION
     Route: 065
     Dates: start: 20111110, end: 20111206
  21. AMLODIN [Concomitant]
     Indication: PRODUCT USED FOR UNKNOWN INDICATION
     Route: 065
     Dates: end: 20120629
  22. ITRIZOLE [Concomitant]
     Indication: PRODUCT USED FOR UNKNOWN INDICATION
     Route: 065
     Dates: start: 20110513
  23. ITRIZOLE [Concomitant]
     Route: 065
     Dates: start: 20111022, end: 20111129
  24. ITRIZOLE [Concomitant]
     Route: 065
     Dates: start: 20120120, end: 20120613
  25. ITRIZOLE [Concomitant]
     Route: 065
     Dates: start: 20120706, end: 20120717
  26. DIAMOX [Concomitant]
     Indication: PRODUCT USED FOR UNKNOWN INDICATION
     Route: 065
     Dates: start: 20110517, end: 20110517
  27. DIAMOX [Concomitant]
     Route: 065
     Dates: start: 20111117, end: 20111119
  28. FIRSTCIN [Concomitant]
     Indication: PRODUCT USED FOR UNKNOWN INDICATION
     Route: 065
     Dates: start: 20110604, end: 20110610
  29. FIRSTCIN [Concomitant]
     Route: 065
     Dates: end: 20111116
  30. FIRSTCIN [Concomitant]
     Route: 065
     Dates: start: 20120210, end: 20120220
  31. FIRSTCIN [Concomitant]
     Route: 065
     Dates: start: 20120719
  32. AMIKACIN SULFATE [Concomitant]
     Indication: PRODUCT USED FOR UNKNOWN INDICATION
     Route: 065
     Dates: start: 20110604, end: 20110610
  33. AMIKACIN SULFATE [Concomitant]
     Route: 065
     Dates: end: 20111110
  34. AMIKACIN SULFATE [Concomitant]
     Route: 065
     Dates: start: 20120210, end: 20120215
  35. LOXOPROFEN SODIUM HYDRATE [Concomitant]
     Indication: PRODUCT USED FOR UNKNOWN INDICATION
     Route: 065
     Dates: start: 20110513
  36. LOXOPROFEN SODIUM HYDRATE [Concomitant]
     Route: 065
     Dates: start: 20111022, end: 20111129
  37. LOXOPROFEN SODIUM HYDRATE [Concomitant]
     Route: 065
     Dates: start: 20111130, end: 20111207
  38. LOXOPROFEN SODIUM HYDRATE [Concomitant]
     Route: 065
     Dates: start: 20120106, end: 20120119
  39. LOXOPROFEN SODIUM HYDRATE [Concomitant]
     Route: 065
     Dates: start: 20120120, end: 20120206
  40. LOXOPROFEN SODIUM HYDRATE [Concomitant]
     Route: 065
     Dates: start: 20120215, end: 20120404
  41. LOXOPROFEN SODIUM HYDRATE [Concomitant]
     Route: 065
     Dates: start: 20120604, end: 20120629
  42. MUCOSTA [Concomitant]
     Indication: PRODUCT USED FOR UNKNOWN INDICATION
     Route: 065
     Dates: start: 20110513
  43. MUCOSTA [Concomitant]
     Route: 065
     Dates: start: 20111022, end: 20111207
  44. MUCOSTA [Concomitant]
     Route: 065
     Dates: start: 20120106, end: 20120119
  45. MUCOSTA [Concomitant]
     Route: 065
     Dates: start: 20120120, end: 20120206
  46. MUCOSTA [Concomitant]
     Route: 065
     Dates: start: 20120215, end: 20120509
  47. MUCOSTA [Concomitant]
     Route: 065
     Dates: start: 20120604, end: 20120629
  48. LAXOBERON [Concomitant]
     Indication: PRODUCT USED FOR UNKNOWN INDICATION
     Route: 065
  49. LAXOBERON [Concomitant]
     Route: 065
     Dates: start: 20111101
  50. BISOLVON [Concomitant]
     Indication: PRODUCT USED FOR UNKNOWN INDICATION
     Route: 065
     Dates: start: 20110602, end: 20110603
  51. EXJADE [Concomitant]
     Indication: PRODUCT USED FOR UNKNOWN INDICATION
     Route: 065
     Dates: start: 20110729, end: 20110908
  52. EXJADE [Concomitant]
     Route: 065
     Dates: start: 20120618, end: 20120628
  53. EXJADE [Concomitant]
     Route: 065
  54. GRAN [Concomitant]
     Indication: PRODUCT USED FOR UNKNOWN INDICATION
     Route: 065
     Dates: start: 20110711, end: 20110721
  55. GRAN [Concomitant]
     Route: 065
     Dates: start: 20111114, end: 20111117
  56. GRAN [Concomitant]
     Route: 065
     Dates: start: 20111126, end: 20111129
  57. GRAN [Concomitant]
     Route: 065
     Dates: start: 20111201, end: 20111201
  58. GRAN [Concomitant]
     Route: 065
     Dates: start: 20120201, end: 20120222
  59. GRAN [Concomitant]
     Route: 065
     Dates: start: 20120524, end: 20120524
  60. GRAN [Concomitant]
     Route: 065
     Dates: start: 20120528, end: 20120528
  61. GRAN [Concomitant]
     Route: 065
     Dates: start: 20120531, end: 20120531
  62. GRAN [Concomitant]
     Route: 065
     Dates: start: 20120604, end: 20120604
  63. GRAN [Concomitant]
     Route: 065
     Dates: start: 20120607, end: 20120607
  64. GRAN [Concomitant]
     Route: 065
     Dates: start: 20120614, end: 20120614
  65. GRAN [Concomitant]
     Route: 065
     Dates: start: 20120719
  66. MAGMITT [Concomitant]
     Indication: PRODUCT USED FOR UNKNOWN INDICATION
     Route: 065
     Dates: end: 20111207
  67. MAGMITT [Concomitant]
     Route: 065
     Dates: start: 20120120
  68. MAGMITT [Concomitant]
     Route: 065
     Dates: start: 20120509, end: 20120629
  69. ALLERMIST [Concomitant]
     Indication: PRODUCT USED FOR UNKNOWN INDICATION
     Route: 065
     Dates: start: 20111101
  70. OMEPRAL [Concomitant]
     Indication: PRODUCT USED FOR UNKNOWN INDICATION
     Route: 065
     Dates: start: 20111101, end: 20111207
  71. OMEPRAL [Concomitant]
     Route: 065
     Dates: start: 20120212, end: 20120509
  72. ALLELOCK [Concomitant]
     Indication: PRODUCT USED FOR UNKNOWN INDICATION
     Route: 065
     Dates: start: 20111116, end: 20111122
  73. PRIMPERAN [Concomitant]
     Indication: PRODUCT USED FOR UNKNOWN INDICATION
     Route: 065
  74. ASPARA [Concomitant]
     Indication: PRODUCT USED FOR UNKNOWN INDICATION
     Route: 065
     Dates: start: 20111116, end: 20111121
  75. CRAVIT [Concomitant]
     Indication: PRODUCT USED FOR UNKNOWN INDICATION
     Route: 065
     Dates: start: 20111201, end: 20111205
  76. CRAVIT [Concomitant]
     Route: 065
     Dates: start: 20120413, end: 20120416
  77. CRAVIT [Concomitant]
     Route: 065
     Dates: start: 20120514, end: 20120516
  78. CRAVIT [Concomitant]
     Route: 065
     Dates: start: 20120604, end: 20120613
  79. ALESION [Concomitant]
     Indication: PRODUCT USED FOR UNKNOWN INDICATION
     Route: 065
     Dates: start: 20120215
  80. ALESION [Concomitant]
     Route: 065
     Dates: start: 20120604, end: 20120629
  81. SOLDEM [Concomitant]
     Indication: PRODUCT USED FOR UNKNOWN INDICATION
     Route: 065
     Dates: start: 20111022, end: 20111028
  82. SOLDEM [Concomitant]
     Route: 065
     Dates: start: 20120119, end: 20120125
  83. SOLDEM [Concomitant]
     Route: 065
     Dates: start: 20120308, end: 20120314
  84. MEYLON [Concomitant]
     Indication: PRODUCT USED FOR UNKNOWN INDICATION
     Route: 065
     Dates: start: 20111022, end: 20111028
  85. MEYLON [Concomitant]
     Route: 065
     Dates: start: 20120119, end: 20120125
  86. MEYLON [Concomitant]
     Route: 065
     Dates: start: 20120308, end: 20120314
  87. NEO-MINOPHAGEN [Concomitant]
     Indication: PRODUCT USED FOR UNKNOWN INDICATION
     Route: 065
     Dates: start: 20111110, end: 20111120
  88. NEO-MINOPHAGEN [Concomitant]
     Route: 065
     Dates: start: 20120510, end: 20120510
  89. NEO-MINOPHAGEN [Concomitant]
     Route: 065
     Dates: start: 20120611, end: 20120612
  90. NEO-MINOPHAGEN [Concomitant]
     Route: 065
     Dates: start: 20120614, end: 20120614
  91. NEO-MINOPHAGEN [Concomitant]
     Route: 065
     Dates: start: 20120618, end: 20120618
  92. NEO-MINOPHAGEN [Concomitant]
     Route: 065
     Dates: start: 20120621, end: 20120622
  93. NEO-MINOPHAGEN [Concomitant]
     Route: 065
     Dates: start: 20120628, end: 20120628
  94. TIENAM [Concomitant]
     Indication: PRODUCT USED FOR UNKNOWN INDICATION
     Route: 065
     Dates: start: 20111116, end: 20111125
  95. NEUTROGIN [Concomitant]
     Indication: PRODUCT USED FOR UNKNOWN INDICATION
     Route: 065
     Dates: start: 20111118, end: 20111125
  96. CHLOR-TRIMETON [Concomitant]
     Indication: PRODUCT USED FOR UNKNOWN INDICATION
     Route: 065
     Dates: start: 20111116, end: 20120301
  97. CHLOR-TRIMETON [Concomitant]
     Route: 065
     Dates: start: 20120316, end: 20120316
  98. XYLOCAINE [Concomitant]
     Indication: PRODUCT USED FOR UNKNOWN INDICATION
     Route: 065
     Dates: start: 20120307, end: 20120307
  99. XYLOCAINE [Concomitant]
     Route: 065
     Dates: start: 20120509, end: 20120509

REACTIONS (7)
  - Febrile neutropenia [Recovered/Resolved]
  - Neutrophil count decreased [Recovering/Resolving]
  - Platelet count decreased [Unknown]
  - Febrile neutropenia [Recovered/Resolved]
  - Febrile neutropenia [Recovered/Resolved]
  - White blood cell count decreased [Recovered/Resolved]
  - Febrile neutropenia [Unknown]
